FAERS Safety Report 7255928-4 (Version None)
Quarter: 2011Q1

REPORT INFORMATION
  Report Type: 
  Country: None (occurrence: None)
  Receive Date: 20110129
  Receipt Date: 20100621
  Transmission Date: 20110831
  Serious: No
  Sender: FDA-Public Use
  Company Number: US-ABBOTT-10P-163-0648476-00

PATIENT
  Sex: Female
  Weight: 49.94 kg

DRUGS (2)
  1. HUMIRA [Suspect]
     Indication: RHEUMATOID ARTHRITIS
     Route: 058
     Dates: start: 20090301
  2. HUMIRA [Suspect]
     Dosage: RAN OUT, AND NO HAD NO INSURANCE.
     Route: 058

REACTIONS (5)
  - INJECTION SITE INDURATION [None]
  - INJECTION SITE SWELLING [None]
  - INCORRECT DOSE ADMINISTERED [None]
  - WRONG TECHNIQUE IN DRUG USAGE PROCESS [None]
  - INJECTION SITE PAIN [None]
